FAERS Safety Report 25763926 (Version 1)
Quarter: 2025Q3

REPORT INFORMATION
  Report Type: Spontaneous
  Country: US (occurrence: US)
  Receive Date: 20250905
  Receipt Date: 20250905
  Transmission Date: 20251020
  Serious: No
  Sender: DOMPE FARMACEUTICI
  Company Number: US-FARMAPROD-202411-3902

PATIENT
  Age: 65 Year
  Sex: Female

DRUGS (21)
  1. OXERVATE [Suspect]
     Active Substance: CENEGERMIN-BKBJ
     Indication: Neurotrophic keratopathy
     Route: 047
     Dates: start: 20241105
  2. OXERVATE [Suspect]
     Active Substance: CENEGERMIN-BKBJ
  3. PEPCID [Concomitant]
     Active Substance: FAMOTIDINE
  4. CLARITIN [Concomitant]
     Active Substance: LORATADINE
  5. SERTRALINE HYDROCHLORIDE [Concomitant]
     Active Substance: SERTRALINE HYDROCHLORIDE
  6. CLONAZEPAM [Concomitant]
     Active Substance: CLONAZEPAM
  7. HERBALS\TURMERIC [Concomitant]
     Active Substance: HERBALS\TURMERIC
  8. FLECAINIDE ACETATE [Concomitant]
     Active Substance: FLECAINIDE ACETATE
  9. SPIRONOLACTONE [Concomitant]
     Active Substance: SPIRONOLACTONE
  10. VITAMIN D3 [Concomitant]
     Active Substance: CHOLECALCIFEROL
  11. ASPIRIN [Concomitant]
     Active Substance: ASPIRIN
  12. FISH OIL [Concomitant]
     Active Substance: FISH OIL
  13. ESTRADIOL [Concomitant]
     Active Substance: ESTRADIOL
  14. CALCIUM 600-D3 [Concomitant]
  15. LISINOPRIL [Concomitant]
     Active Substance: LISINOPRIL
  16. RETAINE PM [Concomitant]
     Active Substance: MINERAL OIL\PETROLATUM
  17. IVIZIA [Concomitant]
     Active Substance: POVIDONE
  18. RESTASIS [Concomitant]
     Active Substance: CYCLOSPORINE
  19. PREDNISOLONE [Concomitant]
     Active Substance: PREDNISOLONE
  20. TIMOLOL MALEATE [Concomitant]
     Active Substance: TIMOLOL MALEATE
  21. DIETARY SUPPLEMENT [Concomitant]
     Active Substance: DIETARY SUPPLEMENT

REACTIONS (4)
  - Eye pain [Not Recovered/Not Resolved]
  - Ocular discomfort [Unknown]
  - Lagophthalmos [Unknown]
  - Eye irritation [Unknown]

NARRATIVE: CASE EVENT DATE: 20241108
